FAERS Safety Report 6102947-7 (Version None)
Quarter: 2009Q1

REPORT INFORMATION
  Report Type: 
  Country: None (occurrence: None)
  Receive Date: 20090305
  Receipt Date: 20090218
  Transmission Date: 20090719
  Serious: Yes (Other)
  Sender: FDA-Public Use
  Company Number: PHHY2009MX05217

PATIENT
  Sex: Female

DRUGS (2)
  1. DIOVAN HCT [Suspect]
     Indication: HYPERTENSION
     Dosage: 1 DF (80/12.5MG), QD
     Route: 048
     Dates: start: 20060801, end: 20070801
  2. DIOVAN HCT [Suspect]
     Dosage: 1 DF (160/12.5MG), QD
     Dates: start: 20070801

REACTIONS (5)
  - BACK PAIN [None]
  - LUMBAR HERNIA [None]
  - MUSCLE CONTRACTURE [None]
  - SPINAL DISORDER [None]
  - SURGERY [None]
